FAERS Safety Report 5570419-4 (Version None)
Quarter: 2007Q4

REPORT INFORMATION
  Report Type: 
  Country: None (occurrence: None)
  Receive Date: 20071221
  Receipt Date: 20071217
  Transmission Date: 20080405
  Serious: Yes (Death)
  Sender: FDA-Public Use
  Company Number: PHHO2007GB19761

PATIENT
  Age: 54 Year
  Sex: Female
  Weight: 99 kg

DRUGS (8)
  1. ASPIRIN [Concomitant]
  2. ATORVASTATIN [Concomitant]
  3. CITALOPRAM HYDROBROMIDE [Concomitant]
  4. ENALAPRIL [Concomitant]
  5. SODIUM BICARBONATE [Concomitant]
  6. MYFORTIC [Suspect]
     Indication: RENAL TRANSPLANT
     Dosage: 720 MG, BID
     Route: 048
  7. AEB071 VS MYFORTIC [Suspect]
     Indication: RENAL TRANSPLANT
     Dosage: 200 MG, BID
     Route: 048
     Dates: start: 20070620
  8. PREDNISOLONE [Concomitant]
     Indication: RENAL TRANSPLANT

REACTIONS (3)
  - DEATH [None]
  - FALL [None]
  - PULMONARY EMBOLISM [None]
